FAERS Safety Report 12142036 (Version 1)
Quarter: 2016Q1

REPORT INFORMATION
  Report Type: Spontaneous
  Country: CH (occurrence: CH)
  Receive Date: 20160303
  Receipt Date: 20160303
  Transmission Date: 20160526
  Serious: Yes (Hospitalization)
  Sender: FDA-Public Use
  Company Number: CH-ASTRAZENECA-2016SE19681

PATIENT
  Age: 34418 Day
  Sex: Female

DRUGS (10)
  1. METRONIDAZOLE. [Suspect]
     Active Substance: METRONIDAZOLE
     Indication: ESCHERICHIA BACTERAEMIA
     Route: 040
     Dates: start: 20160205
  2. LASIX [Suspect]
     Active Substance: FUROSEMIDE
     Route: 040
     Dates: start: 20160210, end: 20160214
  3. PROPYCIL [Suspect]
     Active Substance: PROPYLTHIOURACIL
     Route: 048
  4. NEXIUM [Suspect]
     Active Substance: ESOMEPRAZOLE MAGNESIUM
     Route: 048
     Dates: start: 20160205
  5. CEFTRIAXON [Suspect]
     Active Substance: CEFTRIAXONE
     Indication: ESCHERICHIA BACTERAEMIA
     Route: 040
     Dates: start: 20160205, end: 20160212
  6. AMLODIPIN [Suspect]
     Active Substance: AMLODIPINE BESYLATE
     Route: 048
     Dates: start: 20160205, end: 20160216
  7. BELOC-ZOK [Suspect]
     Active Substance: METOPROLOL SUCCINATE
     Route: 048
     Dates: start: 20160208
  8. ESCITALOPRAM [Suspect]
     Active Substance: ESCITALOPRAM OXALATE
     Route: 048
     Dates: end: 20160216
  9. IPRAMOL [Concomitant]
     Active Substance: ALBUTEROL SULFATE\IPRATROPIUM BROMIDE
     Route: 055
  10. CALCIPARINE [Suspect]
     Active Substance: HEPARIN CALCIUM
     Route: 058
     Dates: start: 20160205

REACTIONS (6)
  - Acute kidney injury [Unknown]
  - Respiratory failure [Unknown]
  - Cardiac failure acute [Unknown]
  - Cholestatic liver injury [Recovering/Resolving]
  - Pancreatitis [Unknown]
  - Escherichia sepsis [Unknown]

NARRATIVE: CASE EVENT DATE: 20160211
